FAERS Safety Report 5580617-1 (Version None)
Quarter: 2008Q1

REPORT INFORMATION
  Report Type: 
  Country: None (occurrence: None)
  Receive Date: 20080103
  Receipt Date: 20071227
  Transmission Date: 20080703
  Serious: Yes (Other)
  Sender: FDA-Public Use
  Company Number: DE-WYE-G00568707

PATIENT
  Sex: Female
  Weight: 62 kg

DRUGS (5)
  1. TREVILOR RETARD [Suspect]
     Indication: GENERALISED ANXIETY DISORDER
     Dosage: DOSE WAS INCREASED UP TO 300 MG PER DAY
     Route: 048
     Dates: start: 20070601, end: 20071010
  2. TREVILOR RETARD [Suspect]
     Indication: SOCIAL PHOBIA
     Dosage: 225 MG / DAY
     Route: 048
     Dates: start: 20071011, end: 20071022
  3. TREVILOR RETARD [Suspect]
     Dosage: 150 MG / DAY
     Route: 048
     Dates: start: 20071023, end: 20071026
  4. TREVILOR RETARD [Suspect]
     Dosage: 75 MG / DAY
     Route: 048
     Dates: start: 20071027, end: 20071030
  5. TREVILOR RETARD [Suspect]
     Dosage: 37.5 MG / DAY
     Route: 048
     Dates: start: 20070101, end: 20070101

REACTIONS (6)
  - DRUG INEFFECTIVE [None]
  - DRUG WITHDRAWAL SYNDROME [None]
  - MUSCLE SPASMS [None]
  - NEUROLEPTIC MALIGNANT SYNDROME [None]
  - OCULOGYRIC CRISIS [None]
  - SPEECH DISORDER [None]
